FAERS Safety Report 20432512 (Version 1)
Quarter: 2022Q1

REPORT INFORMATION
  Report Type: Spontaneous
  Country: US (occurrence: US)
  Receive Date: 20220204
  Receipt Date: 20220204
  Transmission Date: 20220424
  Serious: No
  Sender: FDA-Public Use
  Company Number: US-PERRIGO-21US031308

PATIENT
  Sex: Female

DRUGS (2)
  1. TRETINOIN [Suspect]
     Active Substance: TRETINOIN
     Indication: Acne
     Dosage: UNKNOWN, NIGHTLY
     Route: 061
     Dates: start: 202005, end: 20211117
  2. TRETINOIN [Suspect]
     Active Substance: TRETINOIN
     Indication: Skin hyperpigmentation

REACTIONS (3)
  - Seborrhoea [Unknown]
  - Application site exfoliation [Not Recovered/Not Resolved]
  - Off label use [Recovered/Resolved]

NARRATIVE: CASE EVENT DATE: 20200501
